FAERS Safety Report 7447092-3 (Version None)
Quarter: 2011Q2

REPORT INFORMATION
  Report Type: 
  Country: None (occurrence: None)
  Receive Date: 20110429
  Receipt Date: 20110425
  Transmission Date: 20111010
  Serious: Yes (Other)
  Sender: FDA-Public Use
  Company Number: BR-ROCHE-735526

PATIENT
  Sex: Female
  Weight: 68 kg

DRUGS (8)
  1. TRIAXONE [Concomitant]
     Dosage: DRUG REPORTED AS TRIAXIN
  2. METHOTREXATE [Concomitant]
  3. FOLIC ACID [Concomitant]
  4. PREDSIM [Concomitant]
  5. ENALAPRIL [Concomitant]
     Indication: BLOOD PRESSURE ABNORMAL
  6. NIMESULIDE [Concomitant]
     Indication: PAIN
     Dosage: FREQUENCY: 1 TABLET, WHEN NECESSARY
  7. TOCILIZUMAB [Suspect]
     Indication: RHEUMATOID ARTHRITIS
     Dosage: FREQUENCY: REPORTED AS 8 MG/KG.
     Route: 042
     Dates: start: 20100501, end: 20101101
  8. OMEPRAZOLE [Concomitant]

REACTIONS (3)
  - HYPERTENSION [None]
  - WEIGHT INCREASED [None]
  - DRUG INEFFECTIVE [None]
